FAERS Safety Report 8346979-7 (Version None)
Quarter: 2012Q2

REPORT INFORMATION
  Report Type: 
  Country: None (occurrence: None)
  Receive Date: 20120509
  Receipt Date: 20120430
  Transmission Date: 20120825
  Serious: Yes (Hospitalization)
  Sender: FDA-Public Use
  Company Number: US-ASTRAZENECA-2012SE15450

PATIENT
  Sex: Female

DRUGS (2)
  1. CRESTOR [Suspect]
     Route: 048
  2. CRESTOR [Suspect]
     Route: 048

REACTIONS (5)
  - WEIGHT BEARING DIFFICULTY [None]
  - DRUG INEFFECTIVE [None]
  - JOINT DISLOCATION [None]
  - JOINT INJURY [None]
  - ARTHRALGIA [None]
